FAERS Safety Report 9748141 (Version 1)
Quarter: 2013Q4

REPORT INFORMATION
  Report Type: Spontaneous
  Country: US (occurrence: None)
  Receive Date: 20131206
  Receipt Date: 20131206
  Transmission Date: 20140711
  Serious: Yes (Life-Threatening, Hospitalization)
  Sender: FDA-Public Use
  Company Number: 2013AP010144

PATIENT
  Age: 71 Year
  Sex: Male

DRUGS (2)
  1. MYCOPHENOLATE MOFETIL TABLETS [Suspect]
     Indication: IMMUNOSUPPRESSANT DRUG THERAPY
  2. MYFORTIC [Suspect]
     Indication: IMMUNOSUPPRESSANT DRUG THERAPY

REACTIONS (6)
  - Oesophageal ulcer haemorrhage [None]
  - Dyspnoea exertional [None]
  - Dizziness postural [None]
  - Hypotension [None]
  - Tachycardia [None]
  - Gastroduodenal haemorrhage [None]
